FAERS Safety Report 7121899-4 (Version None)
Quarter: 2010Q4

REPORT INFORMATION
  Report Type: 
  Country: None (occurrence: None)
  Receive Date: 20101124
  Receipt Date: 20060919
  Transmission Date: 20110411
  Serious: Yes (Other)
  Sender: FDA-Public Use
  Company Number: NL-ROCHE-743703

PATIENT

DRUGS (1)
  1. XELODA [Suspect]
     Route: 048

REACTIONS (4)
  - DIARRHOEA [None]
  - DIHYDROPYRIMIDINE DEHYDROGENASE DEFICIENCY [None]
  - NAUSEA [None]
  - VOMITING [None]
